FAERS Safety Report 15061387 (Version 1)
Quarter: 2018Q2

REPORT INFORMATION
  Report Type: Spontaneous
  Country: US (occurrence: US)
  Receive Date: 20180625
  Receipt Date: 20180625
  Transmission Date: 20180711
  Serious: No
  Sender: FDA-Public Use
  Company Number: US-ROCHE-2063163

PATIENT
  Sex: Male

DRUGS (1)
  1. CELLCEPT [Suspect]
     Active Substance: MYCOPHENOLATE MOFETIL\MYCOPHENOLATE MOFETIL HYDROCHLORIDE
     Indication: MYASTHENIA GRAVIS
     Dosage: SIX 250 MG TABS A DAY ;ONGOING: YES
     Route: 048

REACTIONS (5)
  - Intentional product use issue [Unknown]
  - Off label use [Unknown]
  - Muscular weakness [Unknown]
  - Dyspnoea [Unknown]
  - Drug ineffective [Unknown]
